FAERS Safety Report 12779244 (Version 1)
Quarter: 2016Q3

REPORT INFORMATION
  Report Type: Spontaneous
  Country: US (occurrence: US)
  Receive Date: 20160921
  Receipt Date: 20160921
  Transmission Date: 20161109
  Serious: No
  Sender: FDA-Public Use
  Company Number: None

PATIENT
  Age: 71 Year
  Sex: Female

DRUGS (1)
  1. ADEMPAS [Suspect]
     Active Substance: RIOCIGUAT
     Indication: COR PULMONALE CHRONIC
     Route: 048
     Dates: start: 20160815

REACTIONS (3)
  - Drug effect decreased [None]
  - Lower respiratory tract infection [None]
  - Pulmonary function test decreased [None]

NARRATIVE: CASE EVENT DATE: 20160919
